FAERS Safety Report 5085592-4 (Version None)
Quarter: 2006Q3

REPORT INFORMATION
  Report Type: 
  Country: None (occurrence: None)
  Receive Date: 20060822
  Receipt Date: 20060517
  Transmission Date: 20061208
  Serious: Yes (Hospitalization)
  Sender: FDA-Public Use
  Company Number: FR-GLAXOSMITHKLINE-B0424258A

PATIENT
  Age: 29 Year
  Sex: Female
  Weight: 82 kg

DRUGS (4)
  1. ZIAGEN [Suspect]
     Indication: HIV INFECTION
     Route: 048
     Dates: start: 20060315, end: 20060325
  2. NORVIR [Concomitant]
     Indication: HIV INFECTION
     Route: 048
     Dates: start: 20060315, end: 20060325
  3. VIREAD [Concomitant]
     Indication: HIV INFECTION
     Route: 048
     Dates: start: 20060315, end: 20060325
  4. REYATAZ [Concomitant]
     Indication: HIV INFECTION
     Route: 048
     Dates: start: 20060315, end: 20060325

REACTIONS (5)
  - INFLUENZA LIKE ILLNESS [None]
  - MYALGIA [None]
  - PYREXIA [None]
  - RASH MACULO-PAPULAR [None]
  - SWELLING FACE [None]
